FAERS Safety Report 13701099 (Version 2)
Quarter: 2017Q3

REPORT INFORMATION
  Report Type: Spontaneous
  Country: JP (occurrence: JP)
  Receive Date: 20170629
  Receipt Date: 20170706
  Transmission Date: 20171127
  Serious: Yes (Life-Threatening, Other)
  Sender: FDA-Public Use
  Company Number: JP-JNJFOC-20170625367

PATIENT

DRUGS (6)
  1. PIRARUBICIN [Suspect]
     Active Substance: PIRARUBICIN
     Indication: T-CELL LYMPHOMA
     Route: 042
  2. DOXORUBICIN HYDROCHLORIDE. [Suspect]
     Active Substance: DOXORUBICIN HYDROCHLORIDE
     Indication: T-CELL LYMPHOMA
     Route: 042
  3. VINCRISTINE [Suspect]
     Active Substance: VINCRISTINE
     Indication: T-CELL LYMPHOMA
     Dosage: MAXIMUM DOSE 2 MG
     Route: 040
  4. DOXORUBICIN HYDROCHLORIDE. [Suspect]
     Active Substance: DOXORUBICIN HYDROCHLORIDE
     Indication: T-CELL LYMPHOMA
     Route: 042
  5. PREDNISOLONE. [Suspect]
     Active Substance: PREDNISOLONE
     Indication: T-CELL LYMPHOMA
     Dosage: ON DAYS 1-5
     Route: 048
  6. CYCLOPHOSPHAMIDE. [Suspect]
     Active Substance: CYCLOPHOSPHAMIDE
     Indication: T-CELL LYMPHOMA
     Route: 042

REACTIONS (13)
  - Neutropenia [Unknown]
  - Nausea [Unknown]
  - Off label use [Unknown]
  - Anaemia [Unknown]
  - Febrile neutropenia [Unknown]
  - Neuropathy peripheral [Unknown]
  - Thrombocytopenia [Unknown]
  - Cardiotoxicity [Unknown]
  - Constipation [Unknown]
  - Liver disorder [Unknown]
  - Product use in unapproved indication [Unknown]
  - Bone marrow failure [Unknown]
  - Hyperglycaemia [Unknown]
